FAERS Safety Report 24098457 (Version 2)
Quarter: 2024Q3

REPORT INFORMATION
  Report Type: Spontaneous
  Country: US (occurrence: US)
  Receive Date: 20240716
  Receipt Date: 20240716
  Transmission Date: 20241016
  Serious: Yes (Hospitalization, Other)
  Sender: IPSEN
  Company Number: US-IPSEN Group, Research and Development-2024-13816

PATIENT
  Age: 40 Year
  Sex: Male
  Weight: 47 kg

DRUGS (4)
  1. ONIVYDE [Suspect]
     Active Substance: IRINOTECAN HYDROCHLORIDE
     Indication: Colon cancer metastatic
     Dosage: DAY 1 AND DAY 15
     Route: 042
     Dates: start: 20240625
  2. BEVACIZUMAB [Suspect]
     Active Substance: BEVACIZUMAB
     Indication: Colon cancer metastatic
     Dosage: DAY 1 AND DAY 15
     Route: 042
     Dates: start: 20240625
  3. MORPHINE SULFATE [Concomitant]
     Active Substance: MORPHINE SULFATE
     Dates: start: 20240529
  4. IMODIUM [Concomitant]
     Active Substance: LOPERAMIDE HYDROCHLORIDE
     Dates: start: 20240630

REACTIONS (2)
  - Pulmonary oedema [Unknown]
  - Gastroenteritis Escherichia coli [Unknown]

NARRATIVE: CASE EVENT DATE: 20240703
